FAERS Safety Report 5375123-3 (Version None)
Quarter: 2007Q2

REPORT INFORMATION
  Report Type: 
  Country: None (occurrence: None)
  Receive Date: 20070629
  Receipt Date: 20060323
  Transmission Date: 20071010
  Serious: No
  Sender: FDA-Public Use
  Company Number: US-ASTRAZENECA-2006UW07376

PATIENT
  Age: 73 Year
  Sex: Female

DRUGS (2)
  1. TAMOXIFEN CITRATE [Suspect]
     Indication: BREAST CANCER METASTATIC
  2. ZOMETA [Concomitant]

REACTIONS (2)
  - BONE NEOPLASM MALIGNANT [None]
  - ENDOMETRIAL HYPERTROPHY [None]
